FAERS Safety Report 13721321 (Version 1)
Quarter: 2017Q3

REPORT INFORMATION
  Report Type: Report from Study
  Country: None (occurrence: BR)
  Receive Date: 20170706
  Receipt Date: 20170706
  Transmission Date: 20171127
  Serious: Yes (Other)
  Sender: FDA-Public Use
  Company Number: BR-ABBVIE-17K-020-2028920-00

PATIENT
  Age: 77 Year
  Sex: Female

DRUGS (1)
  1. HUMIRA [Suspect]
     Active Substance: ADALIMUMAB
     Indication: RHEUMATOID ARTHRITIS
     Route: 058
     Dates: start: 20160525, end: 201706

REACTIONS (7)
  - Rash macular [Unknown]
  - Skin burning sensation [Unknown]
  - Purulent discharge [Unknown]
  - Neoplasm skin [Unknown]
  - Pain of skin [Unknown]
  - Skin lesion [Unknown]
  - Rhinalgia [Unknown]

NARRATIVE: CASE EVENT DATE: 201706
